FAERS Safety Report 5517148-0 (Version None)
Quarter: 2007Q4

REPORT INFORMATION
  Report Type: 
  Country: None (occurrence: None)
  Receive Date: 20071114
  Receipt Date: 20071113
  Transmission Date: 20080405
  Serious: Yes (Hospitalization)
  Sender: FDA-Public Use
  Company Number: B0494437A

PATIENT
  Age: 44 Year
  Sex: Male
  Weight: 86 kg

DRUGS (9)
  1. PAXIL [Suspect]
     Indication: MAJOR DEPRESSION
     Route: 048
     Dates: start: 20070208, end: 20070321
  2. BENZODIAZEPINE [Suspect]
     Indication: SUICIDE ATTEMPT
     Dosage: 30TAB PER DAY
     Route: 048
     Dates: start: 20070322
  3. PLACEBO [Concomitant]
     Indication: MAJOR DEPRESSION
     Route: 048
     Dates: start: 20070201, end: 20070207
  4. RHYTHMY [Concomitant]
     Indication: SLEEP DISORDER
     Dosage: 2MG PER DAY
     Route: 048
     Dates: start: 20070201, end: 20070221
  5. RHYTHMY [Concomitant]
     Dosage: 2MG PER DAY
     Route: 048
     Dates: start: 20070324, end: 20070405
  6. HALCION [Concomitant]
     Indication: SLEEP DISORDER
     Dosage: .25MG PER DAY
     Route: 048
     Dates: start: 20070222, end: 20070228
  7. HALCION [Concomitant]
     Dosage: .25MG PER DAY
     Route: 048
     Dates: start: 20070308, end: 20070322
  8. LENDORMIN [Concomitant]
     Indication: SLEEP DISORDER
     Dosage: .25MG PER DAY
     Route: 048
     Dates: start: 20070301, end: 20070307
  9. NITRAZEPAM [Concomitant]
     Dosage: 5MG PER DAY
     Route: 048
     Dates: start: 20070324, end: 20070405

REACTIONS (7)
  - CONTUSION [None]
  - INTENTIONAL OVERDOSE [None]
  - LYMPHOCYTE COUNT DECREASED [None]
  - NEUTROPHIL COUNT INCREASED [None]
  - SUICIDE ATTEMPT [None]
  - TOOTH FRACTURE [None]
  - WHITE BLOOD CELL COUNT INCREASED [None]
